FAERS Safety Report 7138501-8 (Version None)
Quarter: 2010Q4

REPORT INFORMATION
  Report Type: 
  Country: None (occurrence: None)
  Receive Date: 20101108
  Receipt Date: 20101101
  Transmission Date: 20110411
  Serious: Yes (Other)
  Sender: FDA-Public Use
  Company Number: JHP201000299

PATIENT
  Age: 39 Year
  Sex: Female

DRUGS (1)
  1. APLISOL [Suspect]
     Indication: MYCOBACTERIUM TUBERCULOSIS COMPLEX TEST
     Dosage: POTENTIALLY UP TO 1 ML POSSIBLY INTO A VIEIN
     Route: 042
     Dates: start: 20100919, end: 20100919

REACTIONS (4)
  - ANAPHYLACTIC REACTION [None]
  - ELECTROCARDIOGRAM T WAVE INVERSION [None]
  - INCORRECT DOSE ADMINISTERED [None]
  - INCORRECT ROUTE OF DRUG ADMINISTRATION [None]
